FAERS Safety Report 21320611 (Version 1)
Quarter: 2022Q3

REPORT INFORMATION
  Report Type: Spontaneous
  Country: FR (occurrence: FR)
  Receive Date: 20220912
  Receipt Date: 20220912
  Transmission Date: 20221027
  Serious: Yes (Other)
  Sender: FDA-Public Use
  Company Number: FR-STRIDES ARCOLAB LIMITED-2022SP011199

PATIENT
  Age: 62 Year
  Sex: Male

DRUGS (6)
  1. TACROLIMUS [Interacting]
     Active Substance: TACROLIMUS
     Indication: Lung transplant
     Dosage: UNK
     Route: 065
     Dates: start: 201209
  2. MYCOPHENOLATE MOFETIL [Suspect]
     Active Substance: MYCOPHENOLATE MOFETIL
     Indication: Lung transplant
     Dosage: UNK
     Route: 065
     Dates: start: 201209
  3. PREDNISOLONE [Suspect]
     Active Substance: PREDNISOLONE
     Indication: Lung transplant
     Dosage: UNK
     Route: 065
     Dates: start: 201209
  4. EVEROLIMUS [Interacting]
     Active Substance: EVEROLIMUS
     Indication: Lung transplant
     Dosage: 0.75 MILLIGRAM, BID
     Route: 065
     Dates: start: 2013
  5. SOTORASIB [Interacting]
     Active Substance: SOTORASIB
     Indication: K-ras gene mutation
     Dosage: 960 MILLIGRAM, QD
     Route: 065
     Dates: start: 20211019
  6. SOTORASIB [Interacting]
     Active Substance: SOTORASIB
     Indication: Lung adenocarcinoma
     Dosage: 480 MILLIGRAM (DOSE REDUCED)
     Route: 065
     Dates: start: 20211214

REACTIONS (5)
  - Drug interaction [Unknown]
  - Renal impairment [Recovered/Resolved]
  - Immunosuppressant drug level decreased [Unknown]
  - Transplant rejection [Recovered/Resolved]
  - Off label use [Unknown]

NARRATIVE: CASE EVENT DATE: 20120901
